FAERS Safety Report 10727937 (Version 2)
Quarter: 2015Q1

REPORT INFORMATION
  Report Type: Spontaneous
  Country: US (occurrence: US)
  Receive Date: 20150121
  Receipt Date: 20150204
  Transmission Date: 20150721
  Serious: Yes (Other)
  Sender: FDA-Public Use
  Company Number: ALCN2015US000715

PATIENT
  Age: 62 Year
  Sex: Female

DRUGS (4)
  1. ERYTHROMYCIN BASE [Concomitant]
     Active Substance: ERYTHROMYCIN
     Indication: EYE PAIN
     Dosage: 1 DF, QHS
     Route: 065
  2. PRESERVATIVE FREE MOISTURE EYES-LUBRICANT EYE DROPS ARTIFICAL TEARS [Concomitant]
     Indication: EYE PAIN
     Dosage: 1 DF, UNK
     Route: 047
  3. NEPAFENAC [Suspect]
     Active Substance: NEPAFENAC
     Indication: EYE PAIN
     Dosage: 1 GTT, TID
     Route: 047
  4. NEPAFENAC [Suspect]
     Active Substance: NEPAFENAC
     Indication: CORNEAL DEFECT

REACTIONS (2)
  - Ulcerative keratitis [Recovered/Resolved]
  - Visual acuity reduced [Recovered/Resolved]
